FAERS Safety Report 4813415-4 (Version None)
Quarter: 2005Q4

REPORT INFORMATION
  Report Type: 
  Country: None (occurrence: None)
  Receive Date: 20051028
  Receipt Date: 20051012
  Transmission Date: 20060501
  Serious: Yes (Death)
  Sender: FDA-Public Use
  Company Number: PHBS2005JP15085

PATIENT
  Age: 79 Year
  Sex: Female

DRUGS (1)
  1. GLEEVEC [Suspect]
     Indication: GASTROINTESTINAL STROMAL TUMOUR
     Route: 048

REACTIONS (4)
  - ABDOMINAL DISTENSION [None]
  - INTRA-ABDOMINAL HAEMORRHAGE [None]
  - PERITONEAL HAEMORRHAGE [None]
  - SHOCK HAEMORRHAGIC [None]
